FAERS Safety Report 9825454 (Version 1)
Quarter: 2013Q4

REPORT INFORMATION
  Report Type: Spontaneous
  Country: US (occurrence: None)
  Receive Date: 20131223
  Receipt Date: 20131223
  Transmission Date: 20140711
  Serious: Yes (Other)
  Sender: FDA-Public Use
  Company Number: 219319LEO

PATIENT
  Age: 79 Year
  Sex: Female

DRUGS (5)
  1. PICATO [Suspect]
     Indication: ACTINIC KERATOSIS
     Dates: start: 20121006, end: 20121008
  2. ASPIRIN (ACETYLSALICYLIC ACID) [Concomitant]
  3. CARVEDILOL (CARVEDILOL) [Concomitant]
  4. DIGOXIN (DIGOXIN) [Concomitant]
  5. THYROID MED (THYROID) [Concomitant]

REACTIONS (6)
  - Application site swelling [None]
  - Application site pruritus [None]
  - Application site reaction [None]
  - Application site paraesthesia [None]
  - Application site pain [None]
  - Lip swelling [None]
